FAERS Safety Report 22632605 (Version 1)
Quarter: 2023Q2

REPORT INFORMATION
  Report Type: Spontaneous
  Country: DE (occurrence: DE)
  Receive Date: 20230623
  Receipt Date: 20230623
  Transmission Date: 20230721
  Serious: Yes (Life-Threatening, Hospitalization, Other)
  Sender: FDA-Public Use
  Company Number: DE-ROCHE-3257231

PATIENT
  Age: 59 Year
  Sex: Male
  Weight: 88 kg

DRUGS (15)
  1. LENALIDOMIDE [Suspect]
     Active Substance: LENALIDOMIDE
     Indication: Follicular lymphoma
     Dosage: 20 MILLIGRAM, ONCE A DAY (20 MG/ DAY ON DAYS 1 TO 21 FOR 12 CYCLES 20MG/DAY ON DAYS 1 TO 21 FOR 12 C
     Route: 048
     Dates: start: 20220929, end: 20221213
  2. LENALIDOMIDE [Suspect]
     Active Substance: LENALIDOMIDE
     Dosage: 20 MILLIGRAM, ONCE A DAY (20 MG/ DAY ON DAYS 1 TO 21 FOR 12 CYCLES)
     Route: 042
     Dates: start: 20220929, end: 20221221
  3. TAFASITAMAB [Suspect]
     Active Substance: TAFASITAMAB
     Indication: Follicular lymphoma
     Dosage: UNK (THE LAST DOSE OF INCMOR00208/PLACEBO PRIOR TO THE SAE WAS TAKEN ON 07DEC022)
     Route: 048
     Dates: start: 20220929
  4. TAFASITAMAB [Suspect]
     Active Substance: TAFASITAMAB
     Dosage: 1080 MILLIGRAM,(1 WEEK) PER WEEK THE FIRST 3 CYCLES AND Q2W THEREAFTER
     Route: 065
     Dates: start: 20220929
  5. RITUXIMAB [Suspect]
     Active Substance: RITUXIMAB
     Indication: Follicular lymphoma
     Dosage: 819 MILLIGRAM, FOR 5 CYCLES. THE  LAST DOSE OF RITUXIMAB PRIOR TO THE SERIOUS ADVERSE EVENT (SAE) WA
     Route: 042
     Dates: start: 20220929, end: 20221123
  6. RITUXIMAB [Suspect]
     Active Substance: RITUXIMAB
     Dosage: 819 MILLIGRAM, FOR 5 CYCLES.
     Route: 042
     Dates: start: 20220929, end: 20221221
  7. ALLOPURINOL [Concomitant]
     Active Substance: ALLOPURINOL
     Indication: Product used for unknown indication
     Dosage: UNK
     Route: 065
     Dates: start: 20220929
  8. PANTOPRAZOLE [Concomitant]
     Active Substance: PANTOPRAZOLE
     Indication: Product used for unknown indication
     Dosage: UNK
     Route: 065
     Dates: start: 20220929
  9. CLEMASTINE [Concomitant]
     Active Substance: CLEMASTINE
     Indication: Product used for unknown indication
     Dosage: UNK
     Route: 065
     Dates: start: 20220929
  10. PREDNISOLONE [Concomitant]
     Active Substance: PREDNISOLONE
     Indication: Product used for unknown indication
     Dosage: UNK
     Route: 065
     Dates: start: 20220929
  11. ASPIRIN [Concomitant]
     Active Substance: ASPIRIN
     Indication: Product used for unknown indication
     Dosage: UNK
     Route: 065
     Dates: start: 20220929
  12. ACETAMINOPHEN [Concomitant]
     Active Substance: ACETAMINOPHEN
     Indication: Product used for unknown indication
     Dosage: UNK
     Route: 065
     Dates: start: 20220929
  13. NEUPOGEN [Concomitant]
     Active Substance: FILGRASTIM
     Indication: Product used for unknown indication
     Dosage: UNK
     Route: 065
     Dates: start: 20221214
  14. PIPERACILLIN SODIUM\TAZOBACTAM SODIUM [Concomitant]
     Active Substance: PIPERACILLIN SODIUM\TAZOBACTAM SODIUM
     Indication: Product used for unknown indication
     Dosage: UNK
     Route: 065
     Dates: start: 20221205, end: 20221207
  15. PIPERACILLIN SODIUM\TAZOBACTAM SODIUM [Concomitant]
     Active Substance: PIPERACILLIN SODIUM\TAZOBACTAM SODIUM
     Indication: Product used for unknown indication
     Dosage: UNK
     Route: 065
     Dates: start: 20221218, end: 20221220

REACTIONS (2)
  - Neutrophil count decreased [Recovered/Resolved]
  - Febrile neutropenia [Recovered/Resolved]

NARRATIVE: CASE EVENT DATE: 20221218
